FAERS Safety Report 5701754-4 (Version None)
Quarter: 2008Q2

REPORT INFORMATION
  Report Type: 
  Country: None (occurrence: None)
  Receive Date: 20080410
  Receipt Date: 20080410
  Transmission Date: 20081010
  Serious: Yes (Life-Threatening, Hospitalization, Disabling, Other)
  Sender: FDA-Public Use
  Company Number: None

PATIENT
  Age: 49 Year
  Sex: Female
  Weight: 102.0593 kg

DRUGS (1)
  1. ALLOPURINOL 100MG TAB [Suspect]
     Indication: GOUT
     Dosage: 100 MG 1 TIME A DAY
     Dates: start: 20071117, end: 20071120

REACTIONS (8)
  - BLINDNESS UNILATERAL [None]
  - CHILLS [None]
  - DIALYSIS [None]
  - PYREXIA [None]
  - SKIN EXFOLIATION [None]
  - SKIN IRRITATION [None]
  - SKIN LESION [None]
  - STOMATITIS [None]
